FAERS Safety Report 9152187 (Version 1)
Quarter: 2013Q1

REPORT INFORMATION
  Report Type: Report from Study
  Country: FR (occurrence: FR)
  Receive Date: 20130308
  Receipt Date: 20130308
  Transmission Date: 20140127
  Serious: Yes (Hospitalization, Other)
  Sender: FDA-Public Use
  Company Number: FR-ROCHE-1199794

PATIENT
  Age: 67 Year
  Sex: Male
  Weight: 72 kg

DRUGS (22)
  1. TOCILIZUMAB [Suspect]
     Indication: RHEUMATOID ARTHRITIS
     Dosage: DOSE STRENGHT : 8 MG/KG
     Route: 042
     Dates: start: 20101222
  2. TOCILIZUMAB [Suspect]
     Route: 042
     Dates: start: 20110120
  3. TOCILIZUMAB [Suspect]
     Route: 042
     Dates: start: 20110217
  4. TOCILIZUMAB [Suspect]
     Route: 042
     Dates: start: 20110317
  5. TOCILIZUMAB [Suspect]
     Route: 042
     Dates: start: 20110707
  6. TOCILIZUMAB [Suspect]
     Route: 042
     Dates: start: 20110804
  7. TOCILIZUMAB [Suspect]
     Route: 042
     Dates: start: 20110902
  8. TOCILIZUMAB [Suspect]
     Route: 042
     Dates: start: 20110930
  9. TOCILIZUMAB [Suspect]
     Route: 042
     Dates: start: 20111103
  10. TOCILIZUMAB [Suspect]
     Route: 042
     Dates: start: 20111201
  11. TOCILIZUMAB [Suspect]
     Route: 042
     Dates: start: 20111229
  12. TOCILIZUMAB [Suspect]
     Route: 042
     Dates: start: 20120126
  13. TOCILIZUMAB [Suspect]
     Dosage: LAST INFUSION 23/FEB/2012
     Route: 042
     Dates: start: 20120223
  14. TOCILIZUMAB [Suspect]
     Route: 042
     Dates: start: 20110414
  15. TOCILIZUMAB [Suspect]
     Route: 042
     Dates: start: 20110512
  16. TOCILIZUMAB [Suspect]
     Route: 042
     Dates: start: 20110609
  17. CORTANCYL [Concomitant]
     Route: 065
     Dates: start: 20070110
  18. CORTANCYL [Concomitant]
     Route: 065
  19. CORTANCYL [Concomitant]
     Route: 065
  20. INEXIUM [Concomitant]
     Route: 065
  21. KALEORID [Concomitant]
     Route: 065
  22. CIMZIA [Concomitant]

REACTIONS (5)
  - Bronchospasm [Recovered/Resolved]
  - Bronchiectasis [Unknown]
  - Hypercholesterolaemia [Not Recovered/Not Resolved]
  - Bronchitis [Recovered/Resolved]
  - Lung infection [Recovered/Resolved]
